FAERS Safety Report 9237084 (Version 4)
Quarter: 2014Q1

REPORT INFORMATION
  Report Type: Spontaneous
  Country: JP (occurrence: JP)
  Receive Date: 20130417
  Receipt Date: 20140204
  Transmission Date: 20141002
  Serious: Yes (Hospitalization)
  Sender: FDA-Public Use
  Company Number: JP-VERTEX PHARMACEUTICALS INC.-2013-004920

PATIENT
  Age: 72 Year
  Sex: Male

DRUGS (12)
  1. TELAVIC [Suspect]
     Indication: CHRONIC HEPATITIS C
     Dosage: 2250 MG, QD
     Route: 048
     Dates: start: 20130110, end: 20130220
  2. TELAVIC [Suspect]
     Dosage: 1500 MG, QD
     Route: 048
     Dates: start: 20130221, end: 20130408
  3. RIBAVIRIN [Suspect]
     Indication: CHRONIC HEPATITIS C
     Dosage: 600 MG, QD
     Route: 048
     Dates: start: 20130110, end: 20130123
  4. RIBAVIRIN [Suspect]
     Dosage: 400 MG, QD
     Route: 048
     Dates: start: 20130124, end: 20130403
  5. RIBAVIRIN [Suspect]
     Dosage: 600 MG, QD
     Route: 048
     Dates: start: 20130404, end: 20130410
  6. RIBAVIRIN [Suspect]
     Dosage: 400 MG, QD
     Route: 048
     Dates: start: 20130411, end: 20130417
  7. RIBAVIRIN [Suspect]
     Dosage: 600 MG, QD
     Route: 048
     Dates: start: 20130418
  8. PEGINTERFERON ALFA-2B [Suspect]
     Indication: CHRONIC HEPATITIS C
     Dosage: 80 ?G/ WEEK
     Route: 058
     Dates: start: 20130110, end: 20130404
  9. PEGINTERFERON ALFA-2B [Suspect]
     Dosage: 80 ?G/ WEEK
     Route: 058
     Dates: start: 20130418
  10. AMOBAN [Concomitant]
     Dosage: 7.5 MG, QD/PRN
     Route: 048
     Dates: end: 20130125
  11. LOXONIN [Concomitant]
     Dosage: 60 MG, QD/PRN
     Route: 048
     Dates: end: 20130321
  12. EPADEL-S [Concomitant]
     Dosage: 2 DF, QD
     Route: 048
     Dates: start: 20130110

REACTIONS (7)
  - Pancreatitis [Recovered/Resolved]
  - Headache [Recovered/Resolved]
  - Stomatitis [Recovered/Resolved]
  - Decreased appetite [Recovered/Resolved]
  - Toxic skin eruption [Recovered/Resolved]
  - Blood uric acid increased [Not Recovered/Not Resolved]
  - Nausea [Recovered/Resolved]
